FAERS Safety Report 9104832 (Version 2)
Quarter: 2013Q1

REPORT INFORMATION
  Report Type: Spontaneous
  Country: US (occurrence: US)
  Receive Date: 20130220
  Receipt Date: 20130313
  Transmission Date: 20140127
  Serious: No
  Sender: FDA-Public Use
  Company Number: US-PFIZER INC-2013061222

PATIENT
  Age: 71 Year
  Sex: Female

DRUGS (7)
  1. ADVIL [Suspect]
     Dosage: UNK
  2. ACETYLSALICYLIC ACID [Suspect]
     Dosage: UNK
  3. COMPAZINE [Suspect]
     Dosage: UNK
  4. LEVAQUIN [Suspect]
     Dosage: UNK
  5. TYLENOL [Suspect]
     Dosage: UNK
  6. PHENERGAN [Suspect]
     Dosage: UNK
  7. OFLOXACIN [Suspect]
     Dosage: UNK

REACTIONS (1)
  - Drug hypersensitivity [Unknown]
